FAERS Safety Report 10737371 (Version 1)
Quarter: 2015Q1

REPORT INFORMATION
  Report Type: Other
  Country: US (occurrence: US)
  Receive Date: 20150126
  Receipt Date: 20150126
  Transmission Date: 20150721
  Serious: Yes (Death)
  Sender: FDA-Public Use
  Company Number: US-LEHIGH_VALLEY-USA-POI0580201500013

PATIENT
  Age: 21 Year
  Sex: Female

DRUGS (11)
  1. CITALOPRAM [Suspect]
     Active Substance: CITALOPRAM HYDROBROMIDE
     Dates: end: 2013
  2. MORPHINE [Suspect]
     Active Substance: MORPHINE
     Dates: end: 2013
  3. COCAINE [Suspect]
     Active Substance: COCAINE
     Dates: end: 2013
  4. MARIJUANA [Suspect]
     Active Substance: CANNABIS SATIVA SUBSP. INDICA TOP
     Dates: end: 2013
  5. AMPHETAMINE [Suspect]
     Active Substance: AMPHETAMINE
     Dates: end: 2013
  6. OXYCODONE HCL CAPSULES [Suspect]
     Active Substance: OXYCODONE HYDROCHLORIDE
     Dates: end: 2013
  7. DEXTROMETHORPHAN [Suspect]
     Active Substance: DEXTROMETHORPHAN
     Dates: end: 2013
  8. FLUOXETINE [Suspect]
     Active Substance: FLUOXETINE\FLUOXETINE HYDROCHLORIDE
     Dates: end: 2013
  9. PROMETHAZINE [Suspect]
     Active Substance: PROMETHAZINE\PROMETHAZINE HYDROCHLORIDE
     Dates: end: 2013
  10. BENZODIAZEPINE [Suspect]
     Active Substance: BENZODIAZEPINE
     Dates: end: 2013
  11. LIDOCAINE. [Suspect]
     Active Substance: LIDOCAINE
     Dates: end: 2013

REACTIONS (3)
  - Cardiac arrest [None]
  - Respiratory arrest [None]
  - Toxicity to various agents [None]

NARRATIVE: CASE EVENT DATE: 2013
